FAERS Safety Report 13612182 (Version 1)
Quarter: 2017Q2

REPORT INFORMATION
  Report Type: Spontaneous
  Country: US (occurrence: US)
  Receive Date: 20170605
  Receipt Date: 20170605
  Transmission Date: 20170830
  Serious: No
  Sender: FDA-Public Use
  Company Number: US-009507513-1705USA015750

PATIENT
  Age: 42 Year
  Sex: Male

DRUGS (1)
  1. SINGULAIR [Suspect]
     Active Substance: MONTELUKAST SODIUM
     Indication: ASTHMA
     Dosage: 1 TABLET OF 10 MG DAILY
     Route: 048

REACTIONS (1)
  - Ear pain [Not Recovered/Not Resolved]

NARRATIVE: CASE EVENT DATE: 201611
